FAERS Safety Report 9164483 (Version 1)
Quarter: 2013Q1

REPORT INFORMATION
  Report Type: Spontaneous
  Country: PT (occurrence: None)
  Receive Date: 20130226
  Receipt Date: 20130226
  Transmission Date: 20140127
  Serious: Yes (Hospitalization, Other)
  Sender: FDA-Public Use
  Company Number: 2013P1002412

PATIENT
  Age: 56 Year
  Sex: Female
  Weight: 60 kg

DRUGS (2)
  1. CEFAZOLIN [Suspect]
     Route: 042
     Dates: start: 20130102, end: 20130102
  2. ISOPRENALINE [Concomitant]

REACTIONS (2)
  - Pyrexia [None]
  - Tremor [None]
